FAERS Safety Report 5839534-1 (Version None)
Quarter: 2008Q3

REPORT INFORMATION
  Report Type: 
  Country: None (occurrence: None)
  Receive Date: 20080807
  Receipt Date: 20080728
  Transmission Date: 20090109
  Serious: Yes (Death, Hospitalization, Other)
  Sender: FDA-Public Use
  Company Number: 15288

PATIENT
  Age: 75 Year
  Sex: Male
  Weight: 58.9676 kg

DRUGS (1)
  1. MORPHINE SULFATE [Suspect]
     Indication: PAIN MANAGEMENT
     Dosage: 180-210 MG DAILY ORALLY
     Route: 048
     Dates: start: 20070101, end: 20080704

REACTIONS (2)
  - NEOPLASM MALIGNANT [None]
  - PHARMACEUTICAL PRODUCT COMPLAINT [None]
